FAERS Safety Report 6689705-X (Version None)
Quarter: 2010Q2

REPORT INFORMATION
  Report Type: 
  Country: None (occurrence: None)
  Receive Date: 20100421
  Receipt Date: 20100409
  Transmission Date: 20101027
  Serious: Yes (Hospitalization, Other)
  Sender: FDA-Public Use
  Company Number: DE-BAYER-201021648GPV

PATIENT
  Sex: Female

DRUGS (1)
  1. MIRENA [Suspect]
     Indication: CONTRACEPTION
     Route: 015
     Dates: start: 20090301

REACTIONS (7)
  - ABDOMINAL PAIN LOWER [None]
  - ABDOMINAL RIGIDITY [None]
  - BACK PAIN [None]
  - BASEDOW'S DISEASE [None]
  - DEPRESSION [None]
  - MENORRHAGIA [None]
  - RESTLESSNESS [None]
